FAERS Safety Report 18944096 (Version 2)
Quarter: 2021Q1

REPORT INFORMATION
  Report Type: Spontaneous
  Country: US (occurrence: US)
  Receive Date: 20210226
  Receipt Date: 20210326
  Transmission Date: 20210420
  Serious: Yes (Other)
  Sender: FDA-Public Use
  Company Number: US-AMGEN-USASP2021027206

PATIENT
  Age: 57 Year
  Sex: Female
  Weight: 45.35 kg

DRUGS (1)
  1. PROLIA [Suspect]
     Active Substance: DENOSUMAB
     Indication: OSTEOPOROSIS POSTMENOPAUSAL
     Dosage: UNK
     Route: 065

REACTIONS (9)
  - Therapeutic product effect incomplete [Unknown]
  - Bone density abnormal [Unknown]
  - Arthralgia [Unknown]
  - Rib fracture [Unknown]
  - Blood cholesterol abnormal [Unknown]
  - Compression fracture [Unknown]
  - Procedural pain [Unknown]
  - Wisdom teeth removal [Unknown]
  - Fall [Unknown]

NARRATIVE: CASE EVENT DATE: 201904
